FAERS Safety Report 14257661 (Version 2)
Quarter: 2018Q1

REPORT INFORMATION
  Report Type: Spontaneous
  Country: IT (occurrence: IT)
  Receive Date: 20171207
  Receipt Date: 20180119
  Transmission Date: 20180508
  Serious: Yes (Hospitalization)
  Sender: FDA-Public Use
  Company Number: IT-WEST-WARD PHARMACEUTICALS CORP.-IT-H14001-17-04666

PATIENT
  Age: 78 Year
  Sex: Male

DRUGS (3)
  1. ENOXAPARIN [Concomitant]
     Active Substance: ENOXAPARIN
     Indication: THROMBOSIS PROPHYLAXIS
     Route: 058
     Dates: start: 20170812, end: 20170824
  2. VANCOMYCIN [Suspect]
     Active Substance: VANCOMYCIN
     Indication: CHOLECYSTITIS ACUTE
     Route: 042
     Dates: start: 20170812, end: 20170827
  3. PIPERLACILLIN/TAZOBACTAM [Concomitant]
     Indication: CHOLECYSTITIS ACUTE
     Route: 042
     Dates: start: 20170812, end: 20170827

REACTIONS (2)
  - Acute febrile neutrophilic dermatosis [Recovering/Resolving]
  - Drug eruption [Recovering/Resolving]

NARRATIVE: CASE EVENT DATE: 20170819
